FAERS Safety Report 21511618 (Version 1)
Quarter: 2022Q4

REPORT INFORMATION
  Report Type: Spontaneous
  Country: CN (occurrence: CN)
  Receive Date: 20221027
  Receipt Date: 20221027
  Transmission Date: 20230113
  Serious: Yes (Other)
  Sender: FDA-Public Use
  Company Number: None

PATIENT
  Age: 49 Year
  Sex: Female
  Weight: 60 kg

DRUGS (6)
  1. CYCLOPHOSPHAMIDE [Suspect]
     Active Substance: CYCLOPHOSPHAMIDE
     Indication: Breast cancer female
     Dosage: 0.9 G, QD D2, DILUTED WITH 50 ML 0.9% SODIUM CHLORIDE
     Route: 041
     Dates: start: 20220920, end: 20220920
  2. SODIUM CHLORIDE [Suspect]
     Active Substance: SODIUM CHLORIDE
     Indication: Medication dilution
     Dosage: 50 ML USED TO DILUTE 0.9 G CYCLOPHOSPHAMIDE, QD, D2
     Route: 041
     Dates: start: 20220920, end: 20220920
  3. SODIUM CHLORIDE [Suspect]
     Active Substance: SODIUM CHLORIDE
     Dosage: 250ML USED TO DILUTE 110 MG DOCETAXEL, QD, D2,
     Route: 041
     Dates: start: 20220920, end: 20220920
  4. SODIUM CHLORIDE [Suspect]
     Active Substance: SODIUM CHLORIDE
     Dosage: 250ML USED TO DILUTE 440 MG TRASTUZUMAB (HERCEPTIN), QD, D1
     Route: 041
     Dates: start: 20220919, end: 20220919
  5. DOCETAXEL [Suspect]
     Active Substance: DOCETAXEL
     Indication: Breast cancer female
     Dosage: 110 MG, QD D2, DILUTED WITH 250 ML 0.9% SODIUM CHLORIDE
     Route: 041
     Dates: start: 20220920, end: 20220920
  6. HERCEPTIN [Suspect]
     Active Substance: TRASTUZUMAB
     Indication: Breast cancer female
     Dosage: 440MG, QD D1, DILUTED WITH 250 ML 0.9% SODIUM CHLORIDE
     Route: 041
     Dates: start: 20220919, end: 20220919

REACTIONS (3)
  - White blood cell count decreased [Recovered/Resolved]
  - Asthenia [Recovering/Resolving]
  - Fatigue [Unknown]

NARRATIVE: CASE EVENT DATE: 20221004
